FAERS Safety Report 10920296 (Version 1)
Quarter: 2015Q1

REPORT INFORMATION
  Report Type: Spontaneous
  Country: US (occurrence: US)
  Receive Date: 20150317
  Receipt Date: 20150317
  Transmission Date: 20150721
  Serious: Yes (Death)
  Sender: FDA-Public Use
  Company Number: US-BIOGENIDEC-2015BI033360

PATIENT
  Sex: Female

DRUGS (2)
  1. REBIF [Concomitant]
     Active Substance: INTERFERON BETA-1A
     Dates: start: 20030321
  2. AVONEX [Suspect]
     Active Substance: INTERFERON BETA-1A
     Indication: PRODUCT USED FOR UNKNOWN INDICATION
     Route: 030
     Dates: start: 20080324

REACTIONS (1)
  - Death [Fatal]
